FAERS Safety Report 9038192 (Version 1)
Quarter: 2013Q1

REPORT INFORMATION
  Report Type: Spontaneous
  Country: US (occurrence: US)
  Receive Date: 20130129
  Receipt Date: 20130129
  Transmission Date: 20140127
  Serious: No
  Sender: FDA-Public Use
  Company Number: US-GLAXOSMITHKLINE-A0979150A

PATIENT
  Sex: Female

DRUGS (6)
  1. WELLBUTRIN [Suspect]
     Dosage: 450MG PER DAY
     Route: 048
  2. ROXICET [Suspect]
     Indication: SUBSTANCE USE
     Route: 048
     Dates: start: 201201, end: 201201
  3. OXYCODONE [Suspect]
     Indication: SUBSTANCE USE
     Dosage: 20MG SINGLE DOSE
     Route: 048
     Dates: start: 201201, end: 201201
  4. BUPROPION HYDROCHLORIDE [Suspect]
     Indication: DEPRESSION
     Dosage: 150MG SEE DOSAGE TEXT
     Route: 048
     Dates: start: 200806
  5. BIRTH CONTROL [Concomitant]
  6. AMBIEN [Concomitant]

REACTIONS (2)
  - Malaise [Recovered/Resolved]
  - Therapeutic response unexpected [Unknown]
